FAERS Safety Report 8297351-X (Version None)
Quarter: 2012Q2

REPORT INFORMATION
  Report Type: 
  Country: None (occurrence: None)
  Receive Date: 20120417
  Receipt Date: 20120409
  Transmission Date: 20120825
  Serious: Yes (Other)
  Sender: FDA-Public Use
  Company Number: ADR-2012-00604

PATIENT
  Age: 14 Year
  Sex: Male

DRUGS (1)
  1. LIORESAL [Suspect]
     Indication: CEREBRAL PALSY

REACTIONS (5)
  - ERYTHEMA [None]
  - DEVICE RELATED INFECTION [None]
  - PAIN [None]
  - PSEUDOMONAS INFECTION [None]
  - MENINGITIS [None]
